FAERS Safety Report 6129325-9 (Version None)
Quarter: 2009Q1

REPORT INFORMATION
  Report Type: 
  Country: None (occurrence: None)
  Receive Date: 20090324
  Receipt Date: 20090318
  Transmission Date: 20090719
  Serious: Yes (Life-Threatening)
  Sender: FDA-Public Use
  Company Number: JP-BAYER-200910819BYL

PATIENT
  Age: 73 Year
  Sex: Female
  Weight: 61 kg

DRUGS (9)
  1. NEXAVAR [Suspect]
     Indication: RENAL CELL CARCINOMA STAGE IV
     Dosage: UNIT DOSE: 200 MG
     Route: 048
     Dates: start: 20080526, end: 20090101
  2. NORVASC [Concomitant]
     Route: 048
     Dates: start: 20070501
  3. ZYLORIC [Concomitant]
     Route: 048
     Dates: start: 20070501
  4. DIOVAN [Concomitant]
     Route: 048
     Dates: start: 20070501
  5. FERROMIA [Concomitant]
     Route: 048
     Dates: start: 20070501
  6. CINAL [Concomitant]
     Route: 048
     Dates: start: 20070501
  7. TAGAMET [Concomitant]
     Route: 048
     Dates: start: 20070501
  8. HYPEN [Concomitant]
     Route: 048
     Dates: start: 20070501
  9. MUCOSTA [Concomitant]
     Route: 048
     Dates: start: 20070501

REACTIONS (4)
  - DIARRHOEA [None]
  - GASTRIC ULCER [None]
  - HAEMATEMESIS [None]
  - RASH [None]
